FAERS Safety Report 8875667 (Version 1)
Quarter: 2012Q4

REPORT INFORMATION
  Report Type: 
  Country: US (occurrence: US)
  Receive Date: 20121030
  Receipt Date: 20121030
  Transmission Date: 20130627
  Serious: Yes (Other)
  Sender: FDA-Public Use
  Company Number: CHPA2012US022350

PATIENT
  Age: 65 Year
  Sex: Female

DRUGS (1)
  1. EX-LAX MAX STR LAX PILLS SENNA [Suspect]
     Indication: CONSTIPATION
     Dosage: 2 DF, 3 TIMES A WEEK
     Route: 048
     Dates: start: 1992

REACTIONS (3)
  - Hypertension [Unknown]
  - Disease recurrence [Not Recovered/Not Resolved]
  - Feeling abnormal [Unknown]
